FAERS Safety Report 6144463-2 (Version None)
Quarter: 2009Q2

REPORT INFORMATION
  Report Type: 
  Country: None (occurrence: None)
  Receive Date: 20090406
  Receipt Date: 20090325
  Transmission Date: 20091009
  Serious: Yes (Other)
  Sender: FDA-Public Use
  Company Number: JP-ROCHE-625045

PATIENT
  Age: 59 Year
  Sex: Male

DRUGS (9)
  1. CELLCEPT [Suspect]
     Indication: GRAFT VERSUS HOST DISEASE
     Route: 048
  2. CELLCEPT [Suspect]
     Route: 048
  3. TACROLIMUS HYDRATE [Concomitant]
  4. TACROLIMUS HYDRATE [Concomitant]
  5. METHOTREXATE [Concomitant]
  6. PREDNISOLONE [Concomitant]
     Dosage: FORM: ORAL FORMULATION (NOT OTHERWISE SPECIFIED).
     Route: 048
  7. PREDNISOLONE [Concomitant]
     Route: 048
  8. METHYLPREDNISOLONE SODIUM SUCCINATE [Concomitant]
     Route: 041
  9. METHYLPREDNISOLONE SODIUM SUCCINATE [Concomitant]
     Dosage: ROUTE: INJECTABLE (NOT OTHERWISE SPECIFIED).
     Route: 041

REACTIONS (9)
  - ABDOMINAL PAIN [None]
  - ASCITES [None]
  - CATHETER RELATED INFECTION [None]
  - CYTOMEGALOVIRUS ANTIGEN POSITIVE [None]
  - DIARRHOEA [None]
  - GASTROINTESTINAL OEDEMA [None]
  - MELAENA [None]
  - RASH [None]
  - THROMBOTIC MICROANGIOPATHY [None]
